FAERS Safety Report 24943042 (Version 1)
Quarter: 2025Q1

REPORT INFORMATION
  Report Type: Spontaneous
  Country: US (occurrence: US)
  Receive Date: 20250207
  Receipt Date: 20250207
  Transmission Date: 20250408
  Serious: No
  Sender: LABORATOIRES SERB
  Company Number: US-SERB S.A.S.-2170725

PATIENT

DRUGS (1)
  1. CYANOKIT [Suspect]
     Active Substance: HYDROXOCOBALAMIN
     Indication: Product used for unknown indication

REACTIONS (3)
  - Hypertension [Recovered/Resolved]
  - Labelled drug-drug interaction issue [Unknown]
  - Wrong technique in product usage process [Unknown]
